FAERS Safety Report 26137694 (Version 1)
Quarter: 2025Q4

REPORT INFORMATION
  Report Type: Spontaneous
  Country: RS (occurrence: RS)
  Receive Date: 20251209
  Receipt Date: 20251209
  Transmission Date: 20260117
  Serious: Yes (Hospitalization)
  Sender: BOEHRINGER INGELHEIM
  Company Number: RS-BoehringerIngelheim-2025-BI-111860

PATIENT
  Age: 66 Year
  Sex: Female

DRUGS (10)
  1. OFEV [Suspect]
     Active Substance: NINTEDANIB
     Indication: Interstitial lung disease
     Dates: start: 202107
  2. CellCept 2 g [Concomitant]
     Indication: Product used for unknown indication
  3. DEFLAZACORT [Concomitant]
     Active Substance: DEFLAZACORT
     Indication: Product used for unknown indication
     Dosage: 24 MG AND LATER 12 MG
  4. long-term oxygen therapy [Concomitant]
     Indication: Product used for unknown indication
  5. Diuver 5 mg [Concomitant]
     Indication: Product used for unknown indication
  6. Eplestar 25mg [Concomitant]
     Indication: Product used for unknown indication
  7. Propranolol 2?20 mg [Concomitant]
     Indication: Product used for unknown indication
     Dosage: 2?20 MG
  8. diuretic therapy [Concomitant]
     Indication: Product used for unknown indication
  9. CORTICOSTEROID NOS [Concomitant]
     Active Substance: CORTICOSTEROID NOS
     Indication: Product used for unknown indication
  10. SILDENAFIL [Concomitant]
     Active Substance: SILDENAFIL
     Indication: Product used for unknown indication

REACTIONS (9)
  - Aortic valve replacement [Unknown]
  - Condition aggravated [Unknown]
  - Forced vital capacity decreased [Unknown]
  - Nausea [Unknown]
  - Diarrhoea [Unknown]
  - Walking distance test abnormal [Unknown]
  - Blood pressure systolic increased [Unknown]
  - Lung diffusion test decreased [Unknown]
  - Blood carbon monoxide decreased [Unknown]

NARRATIVE: CASE EVENT DATE: 20221001
